FAERS Safety Report 10156747 (Version 3)
Quarter: 2014Q2

REPORT INFORMATION
  Report Type: Spontaneous
  Country: GB (occurrence: None)
  Receive Date: 20140505
  Receipt Date: 20140528
  Transmission Date: 20141212
  Serious: Yes (Disabling)
  Sender: FDA-Public Use
  Company Number: AUR-APL-2014-04476

PATIENT
  Age: 22 Year
  Sex: Female

DRUGS (4)
  1. QUETIAPINE [Suspect]
     Indication: PRODUCT USED FOR UNKNOWN INDICATION
     Dosage: 50 MG (25 MG,2 IN 1 D)
  2. LYRICA [Suspect]
     Indication: ANXIETY
     Dosage: 225 MG (75 MG,3 IN 1 D),ORAL
     Route: 048
     Dates: start: 2006
  3. HALOPERIDOL [Suspect]
     Indication: PRODUCT USED FOR UNKNOWN INDICATION
     Dosage: 1 MG (0.5 MG, 2 IN 1 D), UNKNOWN
  4. PROCYCLIDINE [Suspect]
     Indication: PRODUCT USED FOR UNKNOWN INDICATION
     Dosage: STOPPED

REACTIONS (7)
  - Movement disorder [None]
  - Musculoskeletal stiffness [None]
  - Drooling [None]
  - Muscle spasms [None]
  - Dystonia [None]
  - Drug interaction [None]
  - No therapeutic response [None]
